FAERS Safety Report 12130640 (Version 2)
Quarter: 2016Q1

REPORT INFORMATION
  Report Type: Report from Study
  Country: JP (occurrence: JP)
  Receive Date: 20160301
  Receipt Date: 20160316
  Transmission Date: 20160526
  Serious: Yes (Hospitalization)
  Sender: FDA-Public Use
  Company Number: JP-ROCHE-1717496

PATIENT
  Age: 11 Year
  Sex: Female

DRUGS (6)
  1. SALBUTAMOL [Concomitant]
     Active Substance: ALBUTEROL
     Route: 065
  2. TULOBUTEROL [Concomitant]
     Active Substance: TULOBUTEROL
     Route: 065
     Dates: start: 20160211
  3. OLOPATADINE [Concomitant]
     Active Substance: OLOPATADINE
  4. OMALIZUMAB [Suspect]
     Active Substance: OMALIZUMAB
     Indication: ASTHMA
     Route: 058
     Dates: start: 20151125
  5. SINGULAIR [Concomitant]
     Active Substance: MONTELUKAST SODIUM
  6. THEO-DUR [Concomitant]
     Active Substance: THEOPHYLLINE ANHYDROUS
     Route: 065
     Dates: start: 20160211

REACTIONS (2)
  - Asthma [Recovering/Resolving]
  - Hypoaesthesia [Recovered/Resolved]

NARRATIVE: CASE EVENT DATE: 20151201
